FAERS Safety Report 8063577-3 (Version None)
Quarter: 2012Q1

REPORT INFORMATION
  Report Type: 
  Country: None (occurrence: None)
  Receive Date: 20120123
  Receipt Date: 20120113
  Transmission Date: 20120608
  Serious: Yes (Hospitalization)
  Sender: FDA-Public Use
  Company Number: US-BAYER-2011-091598

PATIENT
  Age: 28 Year
  Sex: Female
  Weight: 68 kg

DRUGS (4)
  1. ASCORBIC ACID [Concomitant]
  2. NSAID'S [Concomitant]
  3. YAZ [Suspect]
     Dosage: UNK
     Dates: start: 20070101, end: 20090101
  4. DROSPIRENONE AND ETHINYL ESTRADIOL [Suspect]
     Dosage: UNK
     Dates: start: 20050101

REACTIONS (2)
  - CHOLECYSTECTOMY [None]
  - CHOLECYSTITIS ACUTE [None]
